FAERS Safety Report 8294571 (Version 3)
Quarter: 2013Q1

REPORT INFORMATION
  Report Type: Report from Study
  Country: JP (occurrence: JP)
  Receive Date: 20111216
  Receipt Date: 20130215
  Transmission Date: 20140127
  Serious: Yes (Other)
  Sender: FDA-Public Use
  Company Number: JP-NOVOPROD-341172

PATIENT
  Age: 3 Year
  Sex: Male
  Weight: 15 kg

DRUGS (1)
  1. NORDITROPIN NORDIFLEX [Suspect]
     Indication: SMALL FOR DATES BABY
     Dosage: 0.4 MG, QD
     Route: 058
     Dates: start: 20100617

REACTIONS (1)
  - Tonsillar hypertrophy [Recovered/Resolved]
